FAERS Safety Report 5541893-4 (Version None)
Quarter: 2007Q4

REPORT INFORMATION
  Report Type: 
  Country: None (occurrence: None)
  Receive Date: 20071210
  Receipt Date: 20071203
  Transmission Date: 20080405
  Serious: Yes (Life-Threatening, Hospitalization)
  Sender: FDA-Public Use
  Company Number: JP-BAYER-200710980BYL

PATIENT
  Age: 77 Year
  Sex: Male

DRUGS (6)
  1. ASPIRIN [Suspect]
     Indication: TRANSIENT ISCHAEMIC ATTACK
     Dosage: TOTAL DAILY DOSE: 100 MG  UNIT DOSE: 100 MG
     Route: 048
     Dates: start: 20070111, end: 20071203
  2. PLAVIX [Suspect]
     Route: 048
     Dates: end: 20071203
  3. SUNRYTHM [Suspect]
     Route: 048
     Dates: end: 20071203
  4. WARFARIN SODIUM [Suspect]
     Route: 048
     Dates: end: 20071203
  5. ARTIST [Suspect]
     Route: 048
     Dates: end: 20071203
  6. OMEPRAL [Suspect]
     Route: 048
     Dates: end: 20071203

REACTIONS (4)
  - DIARRHOEA [None]
  - ERYTHEMA MULTIFORME [None]
  - PYREXIA [None]
  - STEVENS-JOHNSON SYNDROME [None]
